FAERS Safety Report 11245163 (Version 1)
Quarter: 2015Q3

REPORT INFORMATION
  Report Type: Spontaneous
  Country: US (occurrence: US)
  Receive Date: 20150707
  Receipt Date: 20150707
  Transmission Date: 20151125
  Serious: No
  Sender: FDA-Public Use
  Company Number: US-BAYER-2015-373485

PATIENT
  Age: 82 Year
  Sex: Female
  Weight: 58.95 kg

DRUGS (2)
  1. LOSARTAN. [Concomitant]
     Active Substance: LOSARTAN
  2. CLARITIN [Suspect]
     Active Substance: LORATADINE
     Indication: SEASONAL ALLERGY
     Dosage: 1 DF, PRN
     Route: 048
     Dates: start: 20150704, end: 20150706

REACTIONS (2)
  - Wrong technique in product usage process [None]
  - Vomiting [Recovered/Resolved]

NARRATIVE: CASE EVENT DATE: 20150706
